FAERS Safety Report 7573159-5 (Version None)
Quarter: 2011Q2

REPORT INFORMATION
  Report Type: 
  Country: None (occurrence: None)
  Receive Date: 20110627
  Receipt Date: 20110613
  Transmission Date: 20111010
  Serious: Yes (Other)
  Sender: FDA-Public Use
  Company Number: US-MYLANLABS-2011S1012556

PATIENT
  Age: 76 Year
  Sex: Female

DRUGS (4)
  1. ZOLPIDEM [Concomitant]
  2. GLYBURIDE [Concomitant]
  3. OXYCODONE AND ACETAMINOPHEN [Concomitant]
     Indication: PAIN IN EXTREMITY
     Dosage: 5MG/325MG EVERY 6 HOURS AS NEEDED
  4. GABAPENTIN [Suspect]
     Indication: DIABETIC NEUROPATHY

REACTIONS (2)
  - AKATHISIA [None]
  - WITHDRAWAL SYNDROME [None]
